FAERS Safety Report 5395065-7 (Version None)
Quarter: 2007Q3

REPORT INFORMATION
  Report Type: 
  Country: None (occurrence: None)
  Receive Date: 20070724
  Receipt Date: 20070717
  Transmission Date: 20080115
  Serious: Yes (Hospitalization, Other)
  Sender: FDA-Public Use
  Company Number: GBWYE040117JUL07

PATIENT
  Sex: Female

DRUGS (1)
  1. EFFEXOR XR [Suspect]
     Dosage: 75MG DAILY, FREQUENCY UNKNOWN
     Route: 048
     Dates: start: 20060701

REACTIONS (5)
  - CONDITION AGGRAVATED [None]
  - CONSTIPATION [None]
  - TREATMENT NONCOMPLIANCE [None]
  - TREMOR [None]
  - YAWNING [None]
